FAERS Safety Report 15697912 (Version 1)
Quarter: 2018Q4

REPORT INFORMATION
  Report Type: Spontaneous
  Country: US (occurrence: US)
  Receive Date: 20181126
  Receipt Date: 20181126
  Transmission Date: 20190205
  Serious: Yes (Hospitalization)
  Sender: FDA-Public Use
  Company Number: None

PATIENT
  Age: 34 Year
  Sex: Female
  Weight: 84.4 kg

DRUGS (1)
  1. PAZOPANIB (GW786034) [Suspect]
     Active Substance: PAZOPANIB
     Dates: end: 20181111

REACTIONS (7)
  - Adnexal torsion [None]
  - Abdominal pain [None]
  - Pyrexia [None]
  - Tachycardia [None]
  - Haemorrhage [None]
  - Adnexa uteri mass [None]
  - Nausea [None]

NARRATIVE: CASE EVENT DATE: 20181112
